FAERS Safety Report 8226943-9 (Version None)
Quarter: 2012Q1

REPORT INFORMATION
  Report Type: 
  Country: None (occurrence: None)
  Receive Date: 20120322
  Receipt Date: 20120315
  Transmission Date: 20120608
  Serious: Yes (Hospitalization)
  Sender: FDA-Public Use
  Company Number: US-BAYER-2011-086425

PATIENT
  Age: 16 Year
  Sex: Female
  Weight: 102.4 kg

DRUGS (7)
  1. YAZ [Suspect]
     Indication: PREMENSTRUAL SYNDROME
     Dosage: UNK
     Dates: start: 20080501, end: 20110701
  2. TOPAMAX [Concomitant]
     Dosage: 50 MG, BID
     Dates: start: 20091001
  3. TYLENOL MIGRAINE [Concomitant]
     Dosage: UNK
     Dates: start: 20000101
  4. PRILOSEC [Concomitant]
     Dosage: 25 MG, UNK
  5. PEPCID [Concomitant]
     Dosage: UNK
     Dates: start: 20080918
  6. PREVACID [Concomitant]
     Indication: HERNIA
     Dosage: UNK
     Dates: start: 20070101, end: 20100901
  7. IRON [Concomitant]

REACTIONS (6)
  - MENTAL DISORDER [None]
  - CHOLECYSTITIS CHRONIC [None]
  - PAIN [None]
  - GALLBLADDER DISORDER [None]
  - BILIARY DYSKINESIA [None]
  - INJURY [None]
